FAERS Safety Report 5347091-1 (Version None)
Quarter: 2007Q2

REPORT INFORMATION
  Report Type: 
  Country: None (occurrence: None)
  Receive Date: 20070604
  Receipt Date: 20070529
  Transmission Date: 20071010
  Serious: Yes (Other)
  Sender: FDA-Public Use
  Company Number: 2007SP010374

PATIENT
  Sex: Female

DRUGS (1)
  1. PEG-INTRON [Suspect]
     Indication: DRUG USE FOR UNKNOWN INDICATION
     Dosage: 150 MCG; SC
     Route: 058
     Dates: start: 20060101, end: 20070201

REACTIONS (4)
  - BASEDOW'S DISEASE [None]
  - DIARRHOEA [None]
  - PSORIASIS [None]
  - VOMITING [None]
